FAERS Safety Report 4338001-4 (Version None)
Quarter: 2004Q2

REPORT INFORMATION
  Report Type: 
  Country: None (occurrence: None)
  Receive Date: 20040408
  Receipt Date: 20040331
  Transmission Date: 20050107
  Serious: Yes (Hospitalization, Disabling)
  Sender: FDA-Public Use
  Company Number: STA-AE-04-MTX-113

PATIENT
  Age: 62 Year
  Sex: Female

DRUGS (2)
  1. RHEUMATREX [Suspect]
     Indication: JUVENILE ARTHRITIS
     Dosage: 8 MG, 1X PER 1 WK, ORAL
     Route: 048
     Dates: start: 20011001, end: 20020903
  2. PREDNISOLONE [Concomitant]

REACTIONS (3)
  - IMMUNODEFICIENCY [None]
  - MENINGITIS CRYPTOCOCCAL [None]
  - PANCYTOPENIA [None]
